FAERS Safety Report 5363299-3 (Version None)
Quarter: 2007Q2

REPORT INFORMATION
  Report Type: 
  Country: None (occurrence: None)
  Receive Date: 20070620
  Receipt Date: 20070608
  Transmission Date: 20071010
  Serious: Yes (Hospitalization)
  Sender: FDA-Public Use
  Company Number: HQWYE415830MAY07

PATIENT
  Sex: Female
  Weight: 124.8 kg

DRUGS (18)
  1. TIGECYCLINE [Suspect]
     Indication: CELLULITIS
     Dosage: 100 MG LOADING DOSE, THEN 50 MG EVERY 12 HOURS
     Route: 042
     Dates: start: 20070509, end: 20070522
  2. FLUCONAZOLE [Concomitant]
     Indication: CANDIDIASIS
     Route: 048
     Dates: start: 20070508
  3. GENTAMICIN [Concomitant]
     Indication: CELLULITIS
     Dosage: AS NEEDED
     Route: 061
     Dates: start: 20070520
  4. METRONIDAZOLE [Concomitant]
     Indication: CLOSTRIDIAL INFECTION
     Route: 048
     Dates: start: 20070513
  5. MYCOSTATIN [Concomitant]
     Indication: CANDIDIASIS
     Dosage: AS NEEDED
     Route: 061
     Dates: start: 20070510
  6. ACETAZOLAMIDE [Concomitant]
     Indication: GLAUCOMA
     Route: 042
     Dates: start: 20070524, end: 20070524
  7. AMLODIPINE [Concomitant]
     Indication: HYPERTENSION
     Route: 048
     Dates: start: 20070508
  8. ACTIVASE [Concomitant]
     Indication: COAGULOPATHY
     Route: 042
     Dates: start: 20070521, end: 20070521
  9. BENZOCAINE [Concomitant]
     Indication: ORAL PAIN
     Dosage: AS NEEDED
     Route: 048
     Dates: start: 20070512
  10. HEPARIN-FRACTION, SODIUM SALT [Concomitant]
     Indication: THROMBOSIS PROPHYLAXIS
     Route: 058
     Dates: start: 20070508
  11. FAMOTIDINE [Concomitant]
     Indication: PEPTIC ULCER
     Route: 048
     Dates: start: 20070508, end: 20070513
  12. FENTANYL [Concomitant]
     Indication: OESOPHAGOGASTRODUODENOSCOPY
     Route: 042
     Dates: start: 20070521, end: 20070521
  13. LABETALOL HCL [Concomitant]
     Indication: HYPERTENSION
     Route: 048
     Dates: start: 20070515
  14. LABETALOL HCL [Concomitant]
     Indication: TACHYCARDIA
  15. LIDOCAINE [Concomitant]
     Indication: PAIN
     Route: 061
     Dates: start: 20070508
  16. SENNA [Concomitant]
     Indication: CONSTIPATION
     Route: 048
     Dates: start: 20070524
  17. SUCRALFATE [Concomitant]
     Indication: GASTRITIS EROSIVE
     Route: 048
     Dates: start: 20070521
  18. DOXYCYCLINE [Concomitant]
     Indication: CELLULITIS
     Route: 048
     Dates: start: 20070501, end: 20070509

REACTIONS (6)
  - DEHYDRATION [None]
  - DIARRHOEA [None]
  - NAUSEA [None]
  - RENAL FAILURE ACUTE [None]
  - RENAL TUBULAR NECROSIS [None]
  - VOMITING [None]
